FAERS Safety Report 7600170-8 (Version None)
Quarter: 2011Q3

REPORT INFORMATION
  Report Type: 
  Country: None (occurrence: None)
  Receive Date: 20110706
  Receipt Date: 20110706
  Transmission Date: 20111222
  Serious: Yes (Life-Threatening, Hospitalization)
  Sender: FDA-Public Use
  Company Number: None

PATIENT
  Sex: Female
  Weight: 56.246 kg

DRUGS (2)
  1. NUVARING [Suspect]
     Indication: CONTRACEPTION
     Dosage: ESTONOGESTREL 0.120 MG DAILY VAG ETHINYL ESTRADIOL 0.015 MG DAILY VAG
     Route: 067
     Dates: start: 20041001, end: 20080501
  2. NUVARING [Suspect]
     Indication: POLYCYSTIC OVARIES
     Dosage: ESTONOGESTREL 0.120 MG DAILY VAG ETHINYL ESTRADIOL 0.015 MG DAILY VAG
     Route: 067
     Dates: start: 20041001, end: 20080501

REACTIONS (3)
  - CEREBRAL THROMBOSIS [None]
  - AMNESIA [None]
  - BLINDNESS TRANSIENT [None]
